FAERS Safety Report 18537357 (Version 2)
Quarter: 2020Q4

REPORT INFORMATION
  Report Type: Spontaneous
  Country: ES (occurrence: ES)
  Receive Date: 20201124
  Receipt Date: 20201202
  Transmission Date: 20210114
  Serious: Yes (Hospitalization, Other)
  Sender: FDA-Public Use
  Company Number: ES-AUROBINDO-AUR-APL-2020-051006

PATIENT
  Age: 80 Year
  Sex: Female
  Weight: 49 kg

DRUGS (7)
  1. DEPAKINE [Suspect]
     Active Substance: VALPROATE SODIUM
     Indication: PRODUCT USED FOR UNKNOWN INDICATION
     Dosage: REPLACE 1 ML OF LEVETIRACETAM BY 1 ML OF DEPAKINE (2 DAY) UNTIL THE 5 ML OF LEVE
     Route: 065
  2. DUPHALAC [Concomitant]
     Active Substance: LACTULOSE
     Indication: CONSTIPATION
     Dosage: UNK
     Route: 065
  3. LEVETIRACETAM AUROBINDO ORAL SOLUTION 100 MG / ML [Suspect]
     Active Substance: LEVETIRACETAM
     Dosage: 5 MILLILITER, TWO TIMES A DAY
     Route: 065
     Dates: start: 20201116
  4. MELATONINE [Concomitant]
     Active Substance: MELATONIN
     Indication: SLEEP DISORDER
     Dosage: UNK
     Route: 065
  5. LEVETIRACETAM AUROBINDO ORAL SOLUTION 100 MG / ML [Suspect]
     Active Substance: LEVETIRACETAM
     Dosage: 4 MILLILITER, TWO TIMES A DAY
     Route: 065
     Dates: start: 20201013
  6. LEVETIRACETAM AUROBINDO ORAL SOLUTION 100 MG / ML [Suspect]
     Active Substance: LEVETIRACETAM
     Indication: EPILEPSY
     Dosage: 1 GRAM, ONCE A DAY
     Route: 048
     Dates: start: 20180912
  7. LEVETIRACETAM AUROBINDO ORAL SOLUTION 100 MG / ML [Suspect]
     Active Substance: LEVETIRACETAM
     Dosage: 5 MILLILITER, TWO TIMES A DAY
     Route: 065

REACTIONS (4)
  - Constipation [Not Recovered/Not Resolved]
  - Gait disturbance [Not Recovered/Not Resolved]
  - Epilepsy [Unknown]
  - Dyspnoea [Recovered/Resolved]

NARRATIVE: CASE EVENT DATE: 20200912
